FAERS Safety Report 13125227 (Version 1)
Quarter: 2017Q1

REPORT INFORMATION
  Report Type: Report from Study
  Country: US (occurrence: US)
  Receive Date: 20170118
  Receipt Date: 20170118
  Transmission Date: 20170428
  Serious: No
  Sender: FDA-Public Use
  Company Number: US-009507513-1701USA002651

PATIENT
  Age: 46 Year
  Sex: Female

DRUGS (1)
  1. BELSOMRA [Suspect]
     Active Substance: SUVOREXANT
     Dosage: UNK UNK, UNKNOWN
     Route: 065

REACTIONS (2)
  - Therapy cessation [Unknown]
  - Hypersensitivity [Unknown]
